FAERS Safety Report 9700565 (Version 1)
Quarter: 2013Q4

REPORT INFORMATION
  Report Type: Spontaneous
  Country: JP (occurrence: JP)
  Receive Date: 20131121
  Receipt Date: 20131121
  Transmission Date: 20140711
  Serious: Yes (Hospitalization, Other)
  Sender: FDA-Public Use
  Company Number: PHHY2013JP131849

PATIENT
  Sex: Male

DRUGS (2)
  1. SANDIMMUN [Suspect]
     Indication: PRURITUS
     Route: 048
  2. SANDIMMUN [Suspect]
     Indication: SKIN DISORDER

REACTIONS (7)
  - Cardiac arrest [Unknown]
  - Thrombosis [Unknown]
  - Pain in extremity [Unknown]
  - Intracardiac thrombus [Unknown]
  - Pulmonary embolism [Unknown]
  - Loss of consciousness [Unknown]
  - Drug ineffective [Unknown]
